FAERS Safety Report 8443693 (Version 4)
Quarter: 2013Q4

REPORT INFORMATION
  Report Type: Report from Study
  Country: DE (occurrence: DE)
  Receive Date: 20120306
  Receipt Date: 20131125
  Transmission Date: 20140711
  Serious: Yes (Hospitalization)
  Sender: FDA-Public Use
  Company Number: PHHY2011DE85425

PATIENT
  Sex: Female
  Weight: 58 kg

DRUGS (9)
  1. AMN107 [Suspect]
     Indication: CHRONIC MYELOID LEUKAEMIA
     Dosage: 400 MG, BID
     Route: 048
     Dates: start: 20110406, end: 20110707
  2. AMN107 [Suspect]
     Dosage: 400 MG, QD
     Route: 048
     Dates: start: 20110808, end: 20120112
  3. AMN107 [Suspect]
     Dosage: 200 MG, BID
     Route: 048
     Dates: start: 20120113
  4. FUROSEMIDE [Concomitant]
     Indication: HYPERTENSION
     Route: 048
     Dates: start: 20110307
  5. OLMETEC [Concomitant]
     Indication: HYPERTENSION
     Route: 048
     Dates: start: 20110406
  6. THYRONAJOD [Concomitant]
     Indication: THYROID DISORDER
     Dosage: 1 DF, QD
     Route: 048
     Dates: start: 20110406
  7. AMLODIPINE [Concomitant]
     Indication: HYPERTENSION
     Dosage: 1 DF, QD
     Dates: start: 20110406
  8. ALLOPURINOL [Concomitant]
     Dates: start: 20110406
  9. RED BLOOD CELLS, CONCENTRATED [Concomitant]
     Dates: start: 20110707, end: 20110707

REACTIONS (8)
  - Large intestine polyp [Recovered/Resolved]
  - Anaemia [Recovered/Resolved]
  - Haemorrhage [Recovered/Resolved]
  - Haemoglobin decreased [Recovered/Resolved]
  - Thrombocytopenia [Recovered/Resolved]
  - Arteriosclerosis [Recovered/Resolved]
  - Infection [Recovered/Resolved]
  - Medication error [Unknown]
